FAERS Safety Report 4734837-6 (Version None)
Quarter: 2005Q3

REPORT INFORMATION
  Report Type: 
  Country: None (occurrence: None)
  Receive Date: 20050802
  Receipt Date: 20050719
  Transmission Date: 20060218
  Serious: Yes (Hospitalization)
  Sender: FDA-Public Use
  Company Number: 2005BI012399

PATIENT
  Age: 70 Year
  Sex: Female

DRUGS (4)
  1. AVONEX [Suspect]
     Indication: MULTIPLE SCLEROSIS
     Dosage: 30 UG; QW; IM
     Route: 030
     Dates: start: 20030827, end: 20050618
  2. METFORMIN [Concomitant]
  3. LOVASTATIN [Concomitant]
  4. ASPIRIN [Concomitant]

REACTIONS (11)
  - ABDOMINAL DISTENSION [None]
  - ADENOCARCINOMA [None]
  - ASCITES [None]
  - DECREASED APPETITE [None]
  - DYSPNOEA [None]
  - HEPATIC LESION [None]
  - LABORATORY TEST ABNORMAL [None]
  - OEDEMA PERIPHERAL [None]
  - OVARIAN CANCER [None]
  - PLEURAL EFFUSION [None]
  - SCAN ABDOMEN ABNORMAL [None]
